FAERS Safety Report 12054963 (Version 1)
Quarter: 2016Q1

REPORT INFORMATION
  Report Type: Report from Study
  Country: US (occurrence: US)
  Receive Date: 20160209
  Receipt Date: 20160209
  Transmission Date: 20160526
  Serious: No
  Sender: FDA-Public Use
  Company Number: US-ABBVIE-15P-163-1460137-00

PATIENT
  Age: 49 Year
  Sex: Female

DRUGS (1)
  1. HUMIRA [Suspect]
     Active Substance: ADALIMUMAB
     Indication: PSORIASIS
     Route: 065
     Dates: start: 20150305

REACTIONS (10)
  - Skin lesion [Unknown]
  - Arthralgia [Not Recovered/Not Resolved]
  - Skin burning sensation [Unknown]
  - Arthralgia [Unknown]
  - Pain in extremity [Unknown]
  - Device issue [Unknown]
  - Arthralgia [Recovered/Resolved]
  - Localised infection [Recovered/Resolved]
  - Psoriatic arthropathy [Recovering/Resolving]
  - Drug ineffective [Not Recovered/Not Resolved]

NARRATIVE: CASE EVENT DATE: 20150305
